FAERS Safety Report 8486671 (Version 2)
Quarter: 2013Q3

REPORT INFORMATION
  Report Type: Spontaneous
  Country: US (occurrence: US)
  Receive Date: 20120402
  Receipt Date: 20130912
  Transmission Date: 20140515
  Serious: No
  Sender: FDA-Public Use
  Company Number: US-PFIZER INC-2012078966

PATIENT
  Age: 48 Year
  Sex: Female
  Weight: 76.19 kg

DRUGS (9)
  1. LYRICA [Suspect]
     Indication: FIBROMYALGIA
     Dosage: 50 MG, 2X/DAY
     Route: 048
  2. LYRICA [Suspect]
     Dosage: 150 MG, 2X/DAY
     Route: 048
  3. HYDROCODONE [Suspect]
     Indication: PAIN
     Dosage: 10/325 MG AT EVERY 4-5 HOURS
  4. SULFUR [Suspect]
     Dosage: UNK
  5. METHADONE [Concomitant]
     Indication: PAIN
     Dosage: 60 MG, 3X/DAY
  6. COENZYME Q10 [Concomitant]
     Dosage: UNK
  7. OMEGA 3 [Concomitant]
     Dosage: UNK
  8. CALCIUM [Concomitant]
     Dosage: UNK
  9. VITAMIN D [Concomitant]
     Dosage: UNK

REACTIONS (3)
  - Drug ineffective [Unknown]
  - Oedema peripheral [Recovered/Resolved]
  - Drug hypersensitivity [Unknown]
